FAERS Safety Report 18918495 (Version 2)
Quarter: 2021Q1

REPORT INFORMATION
  Report Type: Spontaneous
  Country: JP (occurrence: JP)
  Receive Date: 20210219
  Receipt Date: 20210302
  Transmission Date: 20210420
  Serious: Yes (Hospitalization)
  Sender: FDA-Public Use
  Company Number: JP-GILEAD-2021-0517607

PATIENT
  Age: 83 Year
  Sex: Female
  Weight: 50.7 kg

DRUGS (15)
  1. HYALURONATE NA [Concomitant]
     Active Substance: HYALURONATE SODIUM
     Dosage: MORNING EVENING 1?2 DROPS
     Route: 047
  2. VEKLURY [Suspect]
     Active Substance: REMDESIVIR
     Indication: COVID-19
     Dosage: 200 MG, QD
     Route: 041
     Dates: start: 20210117, end: 20210117
  3. SENNOSIDE A+B [Concomitant]
     Active Substance: SENNOSIDES A AND B
     Indication: CONSTIPATION
     Dosage: 2 DOSAGE FORM DURING CONSTIPATION
  4. DAIOKANZOTO [Concomitant]
     Active Substance: LICORICE ROOT EXTRACT\RHUBARB
     Dosage: 2 PACKAGES AFTER BREAKFAST, DINNER
  5. BISOPROLOL FUMARATE. [Concomitant]
     Active Substance: BISOPROLOL FUMARATE
     Dosage: 1 DOSAGE FORM AFTER DINNER
     Dates: start: 20210117
  6. TRAVATAN Z [Concomitant]
     Active Substance: TRAVOPROST
     Dosage: MORNING 1 DROP
     Route: 047
  7. VEKLURY [Suspect]
     Active Substance: REMDESIVIR
     Dosage: 100 MG, QD
     Route: 041
     Dates: start: 20210118, end: 20210121
  8. CILNIDIPINE [Concomitant]
     Active Substance: CILNIDIPINE
     Dosage: 1 DOSAGE FORM AFTER BREAKFAST
  9. CANDESARTAN [CANDESARTAN CILEXETIL] [Concomitant]
     Active Substance: CANDESARTAN CILEXETIL
     Dosage: 12 MG AFTER BREAKFAST
  10. LIXIANA OD [Concomitant]
     Active Substance: EDOXABAN TOSYLATE
     Dosage: 1 DOSAGE FORM AFTER BREAKFAST
     Dates: start: 20210117
  11. MAGNESIUM OXIDE. [Concomitant]
     Active Substance: MAGNESIUM OXIDE
     Dosage: 2 DOSAGE FORM AFTER BREAKFAST , DINNER
  12. CALONAL [Concomitant]
     Active Substance: ACETAMINOPHEN
     Indication: PYREXIA
     Dosage: 2 DOSAGE FORM DURING PYREXIA
     Dates: start: 20210117
  13. AMLODIPINE [AMLODIPINE BESILATE] [Concomitant]
     Active Substance: AMLODIPINE BESYLATE
     Dosage: 1 DOSAGE FORM AFTER BREAKFAST
  14. CANDESARTAN [CANDESARTAN CILEXETIL] [Concomitant]
     Active Substance: CANDESARTAN CILEXETIL
     Dosage: 8 MG
  15. LANSOPRAZOLE. [Concomitant]
     Active Substance: LANSOPRAZOLE
     Dosage: 1 DOSAGE FORM AFTER BREAKFAST

REACTIONS (1)
  - Supraventricular tachycardia [Recovered/Resolved]

NARRATIVE: CASE EVENT DATE: 20210117
